FAERS Safety Report 17710711 (Version 2)
Quarter: 2022Q2

REPORT INFORMATION
  Report Type: Spontaneous
  Country: US (occurrence: US)
  Receive Date: 20200427
  Receipt Date: 20220518
  Transmission Date: 20220721
  Serious: No
  Sender: FDA-Public Use
  Company Number: US-PFIZER INC-2020165182

PATIENT
  Age: 57 Year
  Sex: Female

DRUGS (2)
  1. SKELAXIN [Suspect]
     Active Substance: METAXALONE
     Indication: Back pain
     Dosage: UNK
  2. SKELAXIN [Suspect]
     Active Substance: METAXALONE
     Dosage: 800 MG, 3X/DAY (TAKE 1 TABLET)
     Route: 048

REACTIONS (4)
  - Feeling abnormal [Unknown]
  - Muscle spasms [Unknown]
  - Pain [Unknown]
  - Off label use [Unknown]
